FAERS Safety Report 21293216 (Version 1)
Quarter: 2022Q3

REPORT INFORMATION
  Report Type: Spontaneous
  Country: SI (occurrence: SI)
  Receive Date: 20220905
  Receipt Date: 20220905
  Transmission Date: 20221027
  Serious: Yes (Hospitalization, Other)
  Sender: FDA-Public Use
  Company Number: SI-NOVARTISPH-NVSC2022SI194787

PATIENT
  Age: 59 Year
  Sex: Female

DRUGS (1)
  1. FINGOLIMOD [Suspect]
     Active Substance: FINGOLIMOD
     Indication: Product used for unknown indication
     Dosage: UNK
     Route: 065
     Dates: start: 2015

REACTIONS (7)
  - Multiple sclerosis relapse [Recovering/Resolving]
  - Quadriparesis [Unknown]
  - Paraesthesia [Unknown]
  - Urinary retention [Unknown]
  - Memory impairment [Unknown]
  - Muscle spasms [Unknown]
  - Urinary incontinence [Unknown]

NARRATIVE: CASE EVENT DATE: 20220301
